FAERS Safety Report 10011855 (Version 1)
Quarter: 2014Q1

REPORT INFORMATION
  Report Type: Spontaneous
  Country: US (occurrence: None)
  Receive Date: 20140313
  Receipt Date: 20140313
  Transmission Date: 20141002
  Serious: Yes (Other)
  Sender: FDA-Public Use
  Company Number: None

PATIENT
  Age: 95 Year
  Sex: Female

DRUGS (1)
  1. FORTEO [Suspect]
     Indication: SENILE OSTEOPOROSIS
     Dates: start: 20131101

REACTIONS (2)
  - Pruritus [None]
  - Rash [None]
